FAERS Safety Report 6291479-1 (Version None)
Quarter: 2009Q3

REPORT INFORMATION
  Report Type: 
  Country: None (occurrence: None)
  Receive Date: 20090729
  Receipt Date: 20090729
  Transmission Date: 20100115
  Serious: Yes (Other)
  Sender: FDA-Public Use
  Company Number: None

PATIENT
  Age: 92 Year
  Sex: Male
  Weight: 58.9676 kg

DRUGS (1)
  1. EXELON [Suspect]
     Indication: AMNESIA
     Dosage: 4.6 MG/24 HRS DAILY TRANSDERMAL
     Route: 062

REACTIONS (1)
  - PARKINSON'S DISEASE [None]
